FAERS Safety Report 9563066 (Version 1)
Quarter: 2013Q3

REPORT INFORMATION
  Report Type: Spontaneous
  Country: PR (occurrence: PR)
  Receive Date: 20130927
  Receipt Date: 20130927
  Transmission Date: 20140515
  Serious: No
  Sender: FDA-Public Use
  Company Number: PR-BRISTOL-MYERS SQUIBB COMPANY-16942054

PATIENT
  Age: 5 Decade
  Sex: Male

DRUGS (5)
  1. ONGLYZA TABS 5 MG [Suspect]
  2. COZAAR [Concomitant]
  3. LASIX [Concomitant]
  4. ALDACTONE [Concomitant]
  5. PRAZOSIN [Concomitant]

REACTIONS (1)
  - Oedema peripheral [Unknown]
